FAERS Safety Report 16578228 (Version 1)
Quarter: 2019Q3

REPORT INFORMATION
  Report Type: Spontaneous
  Country: JP (occurrence: JP)
  Receive Date: 20190716
  Receipt Date: 20190716
  Transmission Date: 20191004
  Serious: Yes (Hospitalization, Other)
  Sender: FDA-Public Use
  Company Number: JP-FERRINGPH-2019FE04289

PATIENT
  Age: 90 Year
  Sex: Male

DRUGS (2)
  1. CASODEX [Concomitant]
     Active Substance: BICALUTAMIDE
     Dosage: UNK
     Route: 048
     Dates: start: 20190603
  2. GONAX [Suspect]
     Active Substance: DEGARELIX
     Indication: PROSTATE CANCER
     Dosage: 240 MG, UNK
     Route: 058
     Dates: start: 20190603

REACTIONS (1)
  - Pneumonia [Not Recovered/Not Resolved]
